FAERS Safety Report 8521150 (Version 2)
Quarter: 2013Q1

REPORT INFORMATION
  Report Type: Spontaneous
  Country: US (occurrence: US)
  Receive Date: 20120419
  Receipt Date: 20130107
  Transmission Date: 20140127
  Serious: Yes (Congenital Anomaly, Other)
  Sender: FDA-Public Use
  Company Number: US-PFIZER INC-2012095185

PATIENT
  Sex: Female

DRUGS (4)
  1. ZOLOFT [Suspect]
     Indication: DEPRESSION
     Dosage: UNK
     Route: 064
     Dates: start: 1991, end: 2012
  2. ZOLOFT [Suspect]
     Indication: ANXIETY
  3. ZOLOFT [Suspect]
     Indication: INSOMNIA
  4. PRENATAL VITAMINS [Concomitant]
     Dosage: UNK
     Route: 064

REACTIONS (7)
  - Maternal exposure timing unspecified [Unknown]
  - Congenital anomaly [Unknown]
  - Cardiac disorder [Not Recovered/Not Resolved]
  - Respiratory disorder neonatal [Not Recovered/Not Resolved]
  - Apnoea neonatal [Unknown]
  - Mental disorder [Unknown]
  - Headache [Unknown]
